FAERS Safety Report 3357689 (Version 2)
Quarter: 2020Q3

REPORT INFORMATION
  Report Type: Spontaneous
  Country: FR (occurrence: None)
  Receive Date: 19961029
  Receipt Date: 19990924
  Transmission Date: 20201104
  Serious: Yes (Life-Threatening, Hospitalization)
  Sender: FDA-Public Use
  Company Number: B0041880A

PATIENT
  Age: 20 Year
  Sex: Female
  Weight: 59.93 kg

DRUGS (5)
  1. ADRENALINE [Concomitant]
     Active Substance: EPINEPHRINE
  2. ERGONOVINE MALEATE. [Suspect]
     Active Substance: ERGONOVINE MALEATE
     Indication: HEADACHE
     Dosage: ORAL
     Route: 048
     Dates: start: 19960731, end: 19960731
  3. IMITREX [Suspect]
     Active Substance: SUMATRIPTAN SUCCINATE
     Indication: HEADACHE
     Dosage: SUBCUTANEOUS
     Route: 058
     Dates: start: 19960730
  4. OXYTOCIN. [Concomitant]
     Active Substance: OXYTOCIN
  5. ADRENALINE + BUPIVACAINE [Concomitant]

REACTIONS (11)
  - Generalised tonic-clonic seizure [None]
  - Cerebral vasoconstriction [None]
  - Hemiplegia [None]
  - Coma [None]
  - Cerebrovascular disorder [None]
  - Brain scan abnormal [None]
  - Extensor plantar response [None]
  - Cerebral ischaemia [None]
  - Brain oedema [None]
  - Headache [None]
  - Status epilepticus [None]
